FAERS Safety Report 4557717-8 (Version None)
Quarter: 2005Q1

REPORT INFORMATION
  Report Type: 
  Country: None (occurrence: None)
  Receive Date: 20050118
  Receipt Date: 20041223
  Transmission Date: 20050727
  Serious: Yes (Life-Threatening)
  Sender: FDA-Public Use
  Company Number: 2005-BP-00183AU

PATIENT
  Age: 75 Year
  Sex: Female

DRUGS (1)
  1. MOBIC [Suspect]
     Indication: OSTEOARTHRITIS
     Dosage: 15 MG (15 MG, ONE TABLET DAILY), PO
     Route: 048
     Dates: start: 20031107, end: 20041015

REACTIONS (1)
  - UPPER GASTROINTESTINAL HAEMORRHAGE [None]
